FAERS Safety Report 16535401 (Version 1)
Quarter: 2019Q3

REPORT INFORMATION
  Report Type: Spontaneous
  Country: US (occurrence: US)
  Receive Date: 20190705
  Receipt Date: 20190705
  Transmission Date: 20191004
  Serious: Yes (Hospitalization, Other)
  Sender: FDA-Public Use
  Company Number: US-ROCHE-2348439

PATIENT
  Age: 71 Year
  Sex: Female
  Weight: 65.83 kg

DRUGS (13)
  1. LEVOTHYROXINE. [Concomitant]
     Active Substance: LEVOTHYROXINE
     Indication: HYPOTHYROIDISM
     Dosage: ONGOING; YES
     Route: 048
  2. PREDNISONE. [Concomitant]
     Active Substance: PREDNISONE
     Route: 048
  3. RITUXAN [Suspect]
     Active Substance: RITUXIMAB
     Indication: RHEUMATOID ARTHRITIS
     Route: 065
     Dates: start: 2017
  4. ATORVASTATIN [Concomitant]
     Active Substance: ATORVASTATIN
     Indication: BLOOD CHOLESTEROL INCREASED
     Route: 048
  5. PANTOPRAZOLE [Concomitant]
     Active Substance: PANTOPRAZOLE
     Dosage: ONGOING; YES
     Route: 048
  6. AMLODIPINE [Concomitant]
     Active Substance: AMLODIPINE BESYLATE
     Indication: HYPERTENSION
     Route: 048
  7. POTASSIUM [Concomitant]
     Active Substance: POTASSIUM
     Route: 048
  8. ATENOLOL. [Concomitant]
     Active Substance: ATENOLOL
     Indication: HYPERTENSION
     Route: 048
  9. FOLIC ACID. [Concomitant]
     Active Substance: FOLIC ACID
     Route: 048
  10. PLAVIX [Concomitant]
     Active Substance: CLOPIDOGREL BISULFATE
     Indication: ANTICOAGULANT THERAPY
     Route: 048
  11. EZETIMIBE. [Concomitant]
     Active Substance: EZETIMIBE
     Route: 048
  12. LORAZEPAM. [Concomitant]
     Active Substance: LORAZEPAM
     Dosage: ONGOING; YES
     Route: 048
  13. FUROSIMIDE [Concomitant]
     Active Substance: FUROSEMIDE
     Dosage: ONGOING; YES
     Route: 048

REACTIONS (5)
  - Pain [Not Recovered/Not Resolved]
  - Thrombosis [Recovering/Resolving]
  - Inflammation [Not Recovered/Not Resolved]
  - Pulmonary embolism [Recovering/Resolving]
  - Bronchitis [Recovering/Resolving]

NARRATIVE: CASE EVENT DATE: 20190622
